APPROVED DRUG PRODUCT: FLUOXETINE HYDROCHLORIDE
Active Ingredient: FLUOXETINE HYDROCHLORIDE
Strength: EQ 20MG BASE
Dosage Form/Route: CAPSULE;ORAL
Application: A075207 | Product #002
Applicant: PHARMOBEDIENT CONSULTING LLC
Approved: Jan 30, 2002 | RLD: No | RS: No | Type: DISCN